FAERS Safety Report 9650866 (Version 2)
Quarter: 2013Q4

REPORT INFORMATION
  Report Type: Report from Study
  Country: US (occurrence: US)
  Receive Date: 20131029
  Receipt Date: 20131104
  Transmission Date: 20140711
  Serious: Yes (Hospitalization)
  Sender: FDA-Public Use
  Company Number: US-SA-2013SA108163

PATIENT
  Age: 72 Year
  Sex: Male
  Weight: 102.3 kg

DRUGS (10)
  1. TAXOTERE [Suspect]
     Indication: PROSTATE CANCER
     Dosage: (75 MG/M2) IV Q 3WEEKS X 6 CYCLES
     Route: 042
     Dates: start: 20090218, end: 20090616
  2. TAXOTERE [Suspect]
     Indication: PROSTATE CANCER
     Dosage: (75 MG/M2) IV Q 3WEEKS X 6 CYCLES
     Route: 042
     Dates: start: 20090716, end: 20091029
  3. LEUPROLIDE ACETATE [Suspect]
     Indication: PROSTATE CANCER
     Route: 065
     Dates: start: 20090225, end: 20101115
  4. CASODEX [Suspect]
     Indication: PROSTATE CANCER
     Route: 065
     Dates: start: 20090218, end: 20090616
  5. PREDNISONE [Suspect]
     Indication: PROSTATE CANCER
     Dosage: 5 MG PO BID FOR 21 DAYS X 6 CYCLES
     Route: 048
     Dates: start: 20090716, end: 20091013
  6. ASPIRIN [Concomitant]
  7. ATENOLOL [Concomitant]
  8. CRESTOR [Concomitant]
  9. HERBAL PREPARATION [Concomitant]
  10. RAMIPRIL [Concomitant]

REACTIONS (1)
  - Coronary artery disease [Recovered/Resolved with Sequelae]
